FAERS Safety Report 18229342 (Version 1)
Quarter: 2020Q3

REPORT INFORMATION
  Report Type: Spontaneous
  Country: IT (occurrence: IT)
  Receive Date: 20200903
  Receipt Date: 20200903
  Transmission Date: 20201103
  Serious: Yes (Other)
  Sender: FDA-Public Use
  Company Number: IT-SHIRE-IT202028602

PATIENT

DRUGS (3)
  1. ADVATE [Suspect]
     Active Substance: ANTIHEMOPHILIC FACTOR, HUMAN RECOMBINANT
     Indication: FACTOR VIII DEFICIENCY
     Dosage: 50 INTERNATIONAL UNIT, QOD
     Route: 042
     Dates: start: 20200108, end: 20200525
  2. ADVATE [Suspect]
     Active Substance: ANTIHEMOPHILIC FACTOR, HUMAN RECOMBINANT
     Indication: FACTOR VIII DEFICIENCY
     Dosage: 50 INTERNATIONAL UNIT, QOD
     Route: 042
     Dates: start: 20200108, end: 20200525
  3. ADVATE [Suspect]
     Active Substance: ANTIHEMOPHILIC FACTOR, HUMAN RECOMBINANT
     Indication: FACTOR VIII DEFICIENCY
     Dosage: 50 INTERNATIONAL UNIT, QOD
     Route: 042
     Dates: start: 20200108, end: 20200525

REACTIONS (1)
  - Inhibiting antibodies positive [Not Recovered/Not Resolved]

NARRATIVE: CASE EVENT DATE: 20200525
